FAERS Safety Report 7128036-0 (Version None)
Quarter: 2010Q4

REPORT INFORMATION
  Report Type: 
  Country: None (occurrence: None)
  Receive Date: 20101112
  Receipt Date: 20101108
  Transmission Date: 20110411
  Serious: Yes (Hospitalization)
  Sender: FDA-Public Use
  Company Number: WAES 1007USA02378

PATIENT
  Age: 78 Year
  Sex: Female

DRUGS (6)
  1. JANUVIA [Suspect]
     Indication: TYPE 2 DIABETES MELLITUS
     Dosage: 50 MG/DAILY/PO
     Route: 048
     Dates: start: 20090219, end: 20100617
  2. RIVAROXABAN [Suspect]
     Indication: CEREBROVASCULAR ACCIDENT PROPHYLAXIS
     Dosage: 20 MG/DAILY/PO ; 20 MG/DAILY/PO
     Route: 048
     Dates: start: 20090219, end: 20100210
  3. RIVAROXABAN [Suspect]
     Indication: CEREBROVASCULAR ACCIDENT PROPHYLAXIS
     Dosage: 20 MG/DAILY/PO ; 20 MG/DAILY/PO
     Route: 048
     Dates: start: 20100212, end: 20100601
  4. GLIPIZIDE [Suspect]
     Indication: TYPE 2 DIABETES MELLITUS
     Dosage: 20 MG/DAILY/PO
     Route: 048
     Dates: start: 20100219
  5. LANTUS [Suspect]
     Indication: TYPE 2 DIABETES MELLITUS
     Dosage: 80 UNITS/DAILY/SC
     Route: 058
     Dates: start: 20100120, end: 20100616
  6. NOVOLOG [Suspect]
     Indication: TYPE 2 DIABETES MELLITUS
     Dosage: 67 UNITS/DAILY/SC
     Route: 058
     Dates: start: 20100513

REACTIONS (8)
  - ANKLE FRACTURE [None]
  - BUNDLE BRANCH BLOCK RIGHT [None]
  - DIABETES MELLITUS INADEQUATE CONTROL [None]
  - ECCHYMOSIS [None]
  - ELECTROCARDIOGRAM ST-T CHANGE [None]
  - FALL [None]
  - GAIT DISTURBANCE [None]
  - SWELLING FACE [None]
